FAERS Safety Report 10205157 (Version 1)
Quarter: 2014Q2

REPORT INFORMATION
  Report Type: Spontaneous
  Country: US (occurrence: None)
  Receive Date: 20140527
  Receipt Date: 20140527
  Transmission Date: 20141212
  Serious: Yes (Hospitalization)
  Sender: FDA-Public Use
  Company Number: None

PATIENT
  Age: 47 Year
  Sex: Female
  Weight: 65.32 kg

DRUGS (3)
  1. LATUDA [Suspect]
     Indication: BIPOLAR DISORDER
     Dosage: 1 PILL AT BEDTIME TAKEN BY MOUTH
     Route: 048
     Dates: start: 20140515, end: 20140525
  2. LATUDA [Suspect]
     Indication: INSOMNIA
     Dosage: 1 PILL AT BEDTIME TAKEN BY MOUTH
     Route: 048
     Dates: start: 20140515, end: 20140525
  3. LATUDA [Suspect]
     Indication: ANXIETY
     Dosage: 1 PILL AT BEDTIME TAKEN BY MOUTH
     Route: 048
     Dates: start: 20140515, end: 20140525

REACTIONS (10)
  - Nuchal rigidity [None]
  - Jaw disorder [None]
  - Tongue disorder [None]
  - Protrusion tongue [None]
  - Dysphagia [None]
  - Pollakiuria [None]
  - Muscle spasms [None]
  - Nausea [None]
  - Tremor [None]
  - Hyperhidrosis [None]
